FAERS Safety Report 4330539-9 (Version None)
Quarter: 2004Q1

REPORT INFORMATION
  Report Type: 
  Country: None (occurrence: None)
  Receive Date: 20040329
  Receipt Date: 20040316
  Transmission Date: 20041129
  Serious: Yes (Death, Hospitalization)
  Sender: FDA-Public Use
  Company Number: US-JNJFOC-20040303801

PATIENT
  Age: 80 Year
  Sex: Male

DRUGS (3)
  1. DURAGESIC [Suspect]
     Indication: PAIN
     Dosage: 25 UG, 1 IN 72 HOUR, TRANSDERMAL
     Route: 062
     Dates: start: 20031015, end: 20031017
  2. FUROSEMIDE (FUROSEMIDE) TABLETS [Concomitant]
  3. AGGRENOX [Concomitant]

REACTIONS (2)
  - COMA [None]
  - RESPIRATORY ARREST [None]
